FAERS Safety Report 16948283 (Version 1)
Quarter: 2019Q4

REPORT INFORMATION
  Report Type: Spontaneous
  Country: US (occurrence: US)
  Receive Date: 20191022
  Receipt Date: 20191022
  Transmission Date: 20200122
  Serious: No
  Sender: FDA-Public Use
  Company Number: US-ROCHE-2383295

PATIENT
  Sex: Male

DRUGS (4)
  1. ESBRIET [Suspect]
     Active Substance: PIRFENIDONE
     Dosage: 3 TABLET THRICE DAILY
     Route: 048
  2. ESBRIET [Suspect]
     Active Substance: PIRFENIDONE
     Dosage: 2 TABLET THRICE DAILY
     Route: 048
  3. NAPROXEN. [Concomitant]
     Active Substance: NAPROXEN
     Route: 065
  4. ESBRIET [Suspect]
     Active Substance: PIRFENIDONE
     Indication: PULMONARY FIBROSIS
     Dosage: 1 TABLET THRICE DAILY
     Route: 048
     Dates: start: 20190508

REACTIONS (3)
  - Fatigue [Unknown]
  - Decreased appetite [Unknown]
  - Rash [Recovered/Resolved]
